FAERS Safety Report 20354567 (Version 1)
Quarter: 2022Q1

REPORT INFORMATION
  Report Type: Spontaneous
  Country: CA (occurrence: CA)
  Receive Date: 20220120
  Receipt Date: 20220120
  Transmission Date: 20220424
  Serious: Yes (Hospitalization, Other)
  Sender: FDA-Public Use
  Company Number: CA-TELIGENT, INC-20220100002

PATIENT
  Age: 84 Year
  Sex: Male
  Weight: 83 kg

DRUGS (3)
  1. GENTAMICIN [Suspect]
     Active Substance: GENTAMICIN
     Indication: Osteomyelitis
     Dosage: 160 MILLIGRAM, QD
     Route: 042
  2. CEFTRIAXONE [Suspect]
     Active Substance: CEFTRIAXONE
     Indication: Osteomyelitis
     Dosage: 2 GRAM, QD
     Route: 042
  3. METRONIDAZOLE [Suspect]
     Active Substance: METRONIDAZOLE
     Indication: Osteomyelitis
     Dosage: 500 MILLIGRAM, BID
     Route: 048

REACTIONS (1)
  - Acute kidney injury [Recovering/Resolving]
